FAERS Safety Report 11869423 (Version 1)
Quarter: 2015Q4

REPORT INFORMATION
  Report Type: Spontaneous
  Country: NL (occurrence: NL)
  Receive Date: 20151227
  Receipt Date: 20151227
  Transmission Date: 20160305
  Serious: Yes (Other)
  Sender: FDA-Public Use
  Company Number: NL-TEVA-617479ACC

PATIENT
  Age: 43 Year
  Sex: Male
  Weight: 84 kg

DRUGS (4)
  1. HUMALOG INJVLST 100E/ML PATROON   3ML [Concomitant]
     Dosage: EXTRA INFO: 24 UNITS
     Route: 058
     Dates: start: 20010101
  2. IBUPROFEN. [Suspect]
     Active Substance: IBUPROFEN
     Indication: TENDONITIS
     Dosage: 1800 MILLIGRAM DAILY; 3 TIMES DAILY ONE PIECE
     Route: 048
     Dates: start: 20150921, end: 20151201
  3. TEGRETOL CR TABLET MGA 200MG [Concomitant]
     Dosage: 400 MILLIGRAM DAILY; TWICE DAILY ONE PIECE
     Route: 048
     Dates: start: 19890923
  4. APIDRA INJ 100E/ML PATROON 3ML [Concomitant]
     Dosage: EXTRA INFO: 8, 10 AND 16 UNITS, GLOBALLY
     Route: 058
     Dates: start: 20120301

REACTIONS (2)
  - Hypoglycaemia [Recovered/Resolved]
  - Loss of consciousness [Recovered/Resolved]

NARRATIVE: CASE EVENT DATE: 20150925
